FAERS Safety Report 21365360 (Version 2)
Quarter: 2022Q4

REPORT INFORMATION
  Report Type: Spontaneous
  Country: US (occurrence: US)
  Receive Date: 20220922
  Receipt Date: 20221007
  Transmission Date: 20230113
  Serious: Yes (Life-Threatening, Hospitalization)
  Sender: FDA-Public Use
  Company Number: US-TEVA-2022-US-2074184

PATIENT
  Age: 58 Year
  Sex: Male

DRUGS (2)
  1. HALOPERIDOL [Suspect]
     Active Substance: HALOPERIDOL
     Indication: Mania
     Route: 030
  2. LORAZEPAM [Suspect]
     Active Substance: LORAZEPAM
     Indication: Mania
     Route: 042

REACTIONS (1)
  - Drug ineffective [Unknown]
